FAERS Safety Report 5097433-X (Version None)
Quarter: 2006Q3

REPORT INFORMATION
  Report Type: 
  Country: None (occurrence: None)
  Receive Date: 20060901
  Receipt Date: 20060825
  Transmission Date: 20061208
  Serious: Yes (Hospitalization)
  Sender: FDA-Public Use
  Company Number: 002#4#2006-00263

PATIENT
  Age: 83 Year
  Sex: Female
  Weight: 36.2878 kg

DRUGS (15)
  1. PARCOPA [Suspect]
     Indication: PARKINSON'S DISEASE
     Dosage: ORAL
     Route: 048
     Dates: start: 20060505
  2. AMANTADINE HCL [Suspect]
     Indication: PARKINSON'S DISEASE
     Dosage: SEE IMAGE
     Route: 048
     Dates: start: 20060401, end: 20060505
  3. AMANTADINE HCL [Suspect]
     Indication: PARKINSON'S DISEASE
     Dosage: SEE IMAGE
     Route: 048
     Dates: start: 20060506, end: 20060515
  4. AMANTADINE HCL [Suspect]
     Indication: PARKINSON'S DISEASE
     Dosage: SEE IMAGE
     Route: 048
     Dates: start: 20060516, end: 20060523
  5. SINEMET [Suspect]
     Indication: PARKINSON'S DISEASE
     Dosage: SEE IMAGE
     Route: 048
     Dates: end: 20060505
  6. SINEMET [Suspect]
     Indication: PARKINSON'S DISEASE
     Dosage: SEE IMAGE
     Route: 048
     Dates: start: 20060506
  7. PRAMIPEXOLE DIHYDROCHLORIDE [Suspect]
     Indication: PARKINSON'S DISEASE
     Dosage: SEE IMAGE
     Dates: end: 20060505
  8. PRAMIPEXOLE DIHYDROCHLORIDE [Suspect]
     Indication: PARKINSON'S DISEASE
     Dosage: SEE IMAGE
     Dates: start: 20060505
  9. ENTACAPONE [Suspect]
     Indication: PARKINSON'S DISEASE
     Dosage: 200 MG,4 IN 1 D, ORAL
     Dates: end: 20060505
  10. AMLODIPINE BESYLATE [Concomitant]
  11. HYZAAR [Concomitant]
  12. DIGOXIN [Concomitant]
  13. CILOSTAZOL [Concomitant]
  14. CLOPIDOGREL [Concomitant]
  15. ASPIRIN [Concomitant]

REACTIONS (10)
  - ABNORMAL DREAMS [None]
  - CONDITION AGGRAVATED [None]
  - CONVULSION [None]
  - DELIRIUM [None]
  - DELUSION [None]
  - DYSKINESIA [None]
  - EXTRAPYRAMIDAL DISORDER [None]
  - HALLUCINATION [None]
  - NIGHTMARE [None]
  - PARKINSONISM [None]
